FAERS Safety Report 12468318 (Version 1)
Quarter: 2016Q2

REPORT INFORMATION
  Report Type: Spontaneous
  Country: US (occurrence: US)
  Receive Date: 20160615
  Receipt Date: 20160615
  Transmission Date: 20160815
  Serious: No
  Sender: FDA-Public Use
  Company Number: US-JUBILANT CADISTA PHARMACEUTICALS-2016JUB00124

PATIENT
  Age: 33 Year
  Sex: Female
  Weight: 52.15 kg

DRUGS (7)
  1. NAPROXEN. [Concomitant]
     Active Substance: NAPROXEN
     Dosage: 500 MG, 3X/DAY
  2. DIAZEPAM. [Concomitant]
     Active Substance: DIAZEPAM
     Dosage: 2 MG, 1X/DAY
  3. CYCLOBENZAPRINE HYDROCHLORIDE. [Suspect]
     Active Substance: CYCLOBENZAPRINE HYDROCHLORIDE
     Indication: MUSCLE SPASMS
     Dosage: 10 MG, UNK
     Route: 048
     Dates: start: 20160330, end: 20160331
  4. TRAMADOL HYDROCHLORIDE. [Concomitant]
     Active Substance: TRAMADOL HYDROCHLORIDE
     Dosage: 50 MG, 3X/DAY
  5. CYCLOBENZAPRINE HYDROCHLORIDE. [Suspect]
     Active Substance: CYCLOBENZAPRINE HYDROCHLORIDE
     Indication: MUSCLE SPASMS
     Dosage: UNK
     Dates: start: 20160324
  6. UNSPECIFIED CONCOMITANT MEDICATION(S) FROM MOTOR VEHICLE ACCIDENT [Concomitant]
  7. LYRICA [Concomitant]
     Active Substance: PREGABALIN
     Dosage: 75 MG, 2X/DAY

REACTIONS (5)
  - Nausea [Not Recovered/Not Resolved]
  - Abdominal pain upper [Recovered/Resolved]
  - Dizziness [Not Recovered/Not Resolved]
  - Constipation [Not Recovered/Not Resolved]
  - Diarrhoea [Not Recovered/Not Resolved]

NARRATIVE: CASE EVENT DATE: 20160327
